FAERS Safety Report 7908860-4 (Version None)
Quarter: 2011Q4

REPORT INFORMATION
  Report Type: 
  Country: None (occurrence: None)
  Receive Date: 20111111
  Receipt Date: 20111102
  Transmission Date: 20120403
  Serious: Yes (Hospitalization)
  Sender: FDA-Public Use
  Company Number: US-BAYER-201038788NA

PATIENT
  Age: 18 Year
  Sex: Female
  Weight: 106 kg

DRUGS (2)
  1. YASMIN [Suspect]
     Indication: POLYCYSTIC OVARIES
  2. YASMIN [Suspect]
     Indication: PRODUCT USED FOR UNKNOWN INDICATION
     Dosage: 1 DF, QD
     Route: 048
     Dates: start: 20060704, end: 20070508

REACTIONS (1)
  - DEEP VEIN THROMBOSIS [None]
